FAERS Safety Report 8357927-8 (Version None)
Quarter: 2012Q2

REPORT INFORMATION
  Report Type: 
  Country: None (occurrence: None)
  Receive Date: 20120511
  Receipt Date: 20120501
  Transmission Date: 20120825
  Serious: Yes (Hospitalization, Other)
  Sender: FDA-Public Use
  Company Number: AUR-APL-2012-02107

PATIENT
  Age: 67 Year
  Weight: 123 kg

DRUGS (4)
  1. ALTACE [Suspect]
     Indication: HYPERTENSION
  2. HYDRALAZINE HCL [Concomitant]
     Indication: HYPERTENSION
  3. LOSARTAN POTASSIUM [Suspect]
     Indication: HYPERTENSION
  4. NORVASC [Suspect]
     Indication: HYPERTENSION

REACTIONS (17)
  - DIABETIC NEPHROPATHY [None]
  - HERPES ZOSTER [None]
  - SWELLING FACE [None]
  - NEURALGIA [None]
  - OTORRHOEA [None]
  - NASAL OEDEMA [None]
  - EAR DISCOMFORT [None]
  - POLYCHONDRITIS [None]
  - WEIGHT INCREASED [None]
  - MIDDLE EAR EFFUSION [None]
  - ANGIOEDEMA [None]
  - AURICULAR SWELLING [None]
  - EAR PAIN [None]
  - AUTOIMMUNE DISORDER [None]
  - TYPE 2 DIABETES MELLITUS [None]
  - OEDEMA PERIPHERAL [None]
  - LIP SWELLING [None]
